FAERS Safety Report 17181921 (Version 1)
Quarter: 2019Q4

REPORT INFORMATION
  Report Type: Spontaneous
  Country: FR (occurrence: FR)
  Receive Date: 20191220
  Receipt Date: 20191220
  Transmission Date: 20200122
  Serious: Yes (Life-Threatening)
  Sender: FDA-Public Use
  Company Number: FR-TEVA-2019-FR-1153856

PATIENT
  Age: 84 Year
  Sex: Male

DRUGS (7)
  1. IRBESARTAN. [Concomitant]
     Active Substance: IRBESARTAN
     Indication: HYPERTENSION
     Dosage: 300 MG
     Route: 048
     Dates: end: 20191104
  2. LASILIX 40 MG, COMPRIM? S?CABLE [Concomitant]
     Active Substance: FUROSEMIDE
     Indication: HYPERTENSION
     Dosage: 1DOSAGE FORM
     Route: 048
  3. ESCITALOPRAM [Suspect]
     Active Substance: ESCITALOPRAM OXALATE
     Indication: DEPRESSION
     Dosage: 10 MG
     Route: 048
  4. SINTROM [Interacting]
     Active Substance: ACENOCOUMAROL
     Indication: CARDIOVASCULAR EVENT PROPHYLAXIS
     Dosage: 1 MG
     Route: 048
     Dates: end: 20191104
  5. TAHOR [Concomitant]
     Active Substance: ATORVASTATIN CALCIUM
     Indication: HYPERCHOLESTEROLAEMIA
     Dosage: 1 DOSAGE FORM
     Route: 048
  6. SERESTA 10 MG, COMPRIM? [Concomitant]
     Active Substance: OXAZEPAM
     Indication: ANXIETY
     Dosage: 15 MG
     Route: 048
  7. ALLOPURINOL. [Concomitant]
     Active Substance: ALLOPURINOL
     Indication: HYPERURICAEMIA
     Dosage: 10 MG
     Route: 048
     Dates: end: 20191104

REACTIONS (4)
  - Peritoneal haemorrhage [Not Recovered/Not Resolved]
  - Anaemia [Not Recovered/Not Resolved]
  - Drug interaction [Recovered/Resolved]
  - Renal haemorrhage [Not Recovered/Not Resolved]

NARRATIVE: CASE EVENT DATE: 20191029
